FAERS Safety Report 16981915 (Version 1)
Quarter: 2019Q4

REPORT INFORMATION
  Report Type: Spontaneous
  Country: DE (occurrence: DE)
  Receive Date: 20191101
  Receipt Date: 20191101
  Transmission Date: 20200122
  Serious: Yes (Other)
  Sender: FDA-Public Use
  Company Number: DE-SA-2019SA298375

PATIENT
  Age: 13 Year
  Sex: Male
  Weight: 45 kg

DRUGS (2)
  1. CLEXANE [Suspect]
     Active Substance: ENOXAPARIN SODIUM
     Indication: OSTEOCHONDROSIS
     Dosage: 20000 IU, TOTAL
     Route: 058
  2. IBUPROFEN. [Concomitant]
     Active Substance: IBUPROFEN
     Dosage: 600 MG, QD (DAILY DOSE: 600 MG MILLGRAM(S) EVERY DAYS 2 SEPARATED DOSES)
     Route: 048
     Dates: start: 20190928, end: 20191002

REACTIONS (7)
  - Nausea [Recovered/Resolved]
  - Cardiovascular disorder [Recovered/Resolved]
  - Disorientation [Recovered/Resolved]
  - Tremor [Recovered/Resolved]
  - Hyperhidrosis [Recovered/Resolved]
  - Pallor [Recovered/Resolved]
  - Fatigue [Recovered/Resolved]

NARRATIVE: CASE EVENT DATE: 20190930
